FAERS Safety Report 10456175 (Version 1)
Quarter: 2014Q3

REPORT INFORMATION
  Report Type: Spontaneous
  Country: US (occurrence: None)
  Receive Date: 20140829
  Receipt Date: 20140829
  Transmission Date: 20150326
  Serious: No
  Sender: FDA-Public Use
  Company Number: JHP201400042

PATIENT
  Sex: Male

DRUGS (1)
  1. DELESTROGEN [Suspect]
     Active Substance: ESTRADIOL VALERATE
     Indication: TRANSGENDER HORMONAL THERAPY
     Dosage: 10 MG, 1X/WEEK, INTRAMUSCULAR
     Route: 030
     Dates: start: 2013, end: 20140119

REACTIONS (5)
  - Sinusitis [None]
  - Off label use [None]
  - Fatigue [None]
  - Affect lability [None]
  - Malaise [None]

NARRATIVE: CASE EVENT DATE: 2013
